FAERS Safety Report 18909887 (Version 1)
Quarter: 2021Q1

REPORT INFORMATION
  Report Type: Spontaneous
  Country: US (occurrence: US)
  Receive Date: 20210218
  Receipt Date: 20210218
  Transmission Date: 20210420
  Serious: Yes (Hospitalization)
  Sender: FDA-Public Use
  Company Number: None

PATIENT
  Age: 36 Year
  Sex: Female
  Weight: 48.9 kg

DRUGS (12)
  1. OMEPRAZOLE. [Concomitant]
     Active Substance: OMEPRAZOLE
  2. CYCANOCOBALAMIN [Concomitant]
  3. OCTREOTIDE. [Concomitant]
     Active Substance: OCTREOTIDE
  4. URSODIOL. [Concomitant]
     Active Substance: URSODIOL
  5. DRONABINOL 5?10 [Concomitant]
  6. LOPERAMIDE [Concomitant]
     Active Substance: LOPERAMIDE
  7. HOME TPN [Concomitant]
  8. XELJANZ [Suspect]
     Active Substance: TOFACITINIB CITRATE
  9. PREDNISONE. [Concomitant]
     Active Substance: PREDNISONE
  10. CITALOPRAM [Concomitant]
     Active Substance: CITALOPRAM HYDROBROMIDE
  11. OPIUM TINCTURE [Concomitant]
     Active Substance: MORPHINE
  12. METHOTREXATE. [Concomitant]
     Active Substance: METHOTREXATE

REACTIONS (5)
  - Leukopenia [None]
  - Sepsis [None]
  - Tachycardia [None]
  - Thrombocytopenia [None]
  - Blood culture positive [None]

NARRATIVE: CASE EVENT DATE: 20190527
